FAERS Safety Report 17778918 (Version 2)
Quarter: 2020Q3

REPORT INFORMATION
  Report Type: Spontaneous
  Country: JP (occurrence: JP)
  Receive Date: 20200513
  Receipt Date: 20200721
  Transmission Date: 20201102
  Serious: Yes (Death, Other)
  Sender: FDA-Public Use
  Company Number: JP-009507513-2005JPN000181J

PATIENT
  Age: 79 Year
  Sex: Male

DRUGS (2)
  1. MINOMYCIN [Concomitant]
     Active Substance: MINOCYCLINE HYDROCHLORIDE
     Indication: PNEUMONIA
     Dosage: UNK
     Route: 065
  2. ZERBAXA [Suspect]
     Active Substance: CEFTOLOZANE SULFATE\TAZOBACTAM SODIUM
     Indication: PNEUMONIA PSEUDOMONAL
     Dosage: 3000 MILLIGRAM, TID
     Route: 041
     Dates: start: 20200427, end: 20200501

REACTIONS (2)
  - Sepsis [Fatal]
  - Dyspnoea [Fatal]

NARRATIVE: CASE EVENT DATE: 2020
